FAERS Safety Report 7960137-7 (Version None)
Quarter: 2011Q4

REPORT INFORMATION
  Report Type: 
  Country: None (occurrence: None)
  Receive Date: 20111201
  Receipt Date: 20111115
  Transmission Date: 20120403
  Serious: Yes (Death)
  Sender: FDA-Public Use
  Company Number: 2009-017

PATIENT
  Age: 86 Year
  Sex: Female

DRUGS (1)
  1. FAZACLO ODT [Suspect]
     Dosage: 37.5 MG, QD, ORAL
     Route: 048
     Dates: start: 20080421, end: 20090125

REACTIONS (6)
  - DEMENTIA [None]
  - RESPIRATORY ARREST [None]
  - MENTAL DISORDER [None]
  - RESPIRATORY TRACT INFECTION [None]
  - ABNORMAL BEHAVIOUR [None]
  - CHRONIC OBSTRUCTIVE PULMONARY DISEASE [None]
